FAERS Safety Report 10192696 (Version 1)
Quarter: 2014Q2

REPORT INFORMATION
  Report Type: Spontaneous
  Country: US (occurrence: US)
  Receive Date: 20140523
  Receipt Date: 20140523
  Transmission Date: 20141212
  Serious: No
  Sender: FDA-Public Use
  Company Number: US-ASTRAZENECA-2013SE87820

PATIENT
  Age: 58 Year
  Sex: Female
  Weight: 88.5 kg

DRUGS (3)
  1. PULMICORT FLEXHALER [Suspect]
     Indication: ALLERGY TO ANIMAL
     Route: 055
  2. LEVOTHYROXINE [Concomitant]
     Indication: THYROID DISORDER
     Route: 048
     Dates: start: 2001
  3. VENTA SOMETHING INHALER [Concomitant]
     Indication: WHEEZING
     Route: 055

REACTIONS (4)
  - Wheezing [Unknown]
  - Cough [Unknown]
  - Off label use [Not Recovered/Not Resolved]
  - Intentional product misuse [Unknown]
